FAERS Safety Report 9826816 (Version 1)
Quarter: 2014Q1

REPORT INFORMATION
  Report Type: Spontaneous
  Country: US (occurrence: None)
  Receive Date: 20140116
  Receipt Date: 20140116
  Transmission Date: 20141002
  Serious: No
  Sender: FDA-Public Use
  Company Number: None

PATIENT
  Age: 29 Year
  Sex: Female
  Weight: 77.11 kg

DRUGS (10)
  1. MONISTAT 1 COMBINATION PACK [Suspect]
     Indication: VULVOVAGINAL MYCOTIC INFECTION
     Dosage: I1 OVULE, INTO VAGINA, APPLIED TO VULVA (EXTERNAL)
     Route: 067
     Dates: start: 20131227, end: 20131227
  2. MONISTAT 1 COMBINATION PACK [Suspect]
     Indication: PREGNANCY
     Dosage: I1 OVULE, INTO VAGINA, APPLIED TO VULVA (EXTERNAL)
     Route: 067
     Dates: start: 20131227, end: 20131227
  3. MICONAZOLE NITRATE CREAM 2% [Suspect]
     Dosage: 1 TUBE CREAM WIPES
  4. DICLEGIS [Concomitant]
  5. UNISOM (DOXYLAMINE) [Concomitant]
  6. B6 [Concomitant]
  7. IRON [Concomitant]
  8. VITAMIN C [Concomitant]
  9. B12 [Concomitant]
  10. FOLATE [Concomitant]

REACTIONS (4)
  - Application site pain [None]
  - Application site pain [None]
  - Application site swelling [None]
  - Application site vesicles [None]
